FAERS Safety Report 9256078 (Version 1)
Quarter: 2013Q2

REPORT INFORMATION
  Report Type: Spontaneous
  Country: US (occurrence: US)
  Receive Date: 20130425
  Receipt Date: 20130425
  Transmission Date: 20140414
  Serious: No
  Sender: FDA-Public Use
  Company Number: US-AMGEN-USASP2012022391

PATIENT
  Age: 34 Year
  Sex: Female
  Weight: 93 kg

DRUGS (9)
  1. PEGFILGRASTIM [Suspect]
     Indication: BREAST CANCER
     Dosage: UNK
     Dates: end: 20081119
  2. BEVACIZUMAB [Suspect]
     Dosage: 1415 MG, UNK
     Route: 042
     Dates: start: 20081007
  3. DOXORUBICIN HYDROCHLORIDE [Suspect]
     Dosage: UNK
     Route: 042
     Dates: start: 20081007
  4. CYCLOPHOSPHAMIDE [Suspect]
     Indication: BREAST CANCER
     Dosage: UNK
     Dates: end: 20091118
  5. PACLITAXEL [Suspect]
     Indication: BREAST CANCER
     Dosage: UNK
     Dates: end: 20090217
  6. BEVACIZUMAB [Concomitant]
     Dosage: UNK
     Route: 042
     Dates: start: 20081007
  7. DOXORUBICIN HYDROCHLORIDE [Concomitant]
     Dosage: UNK
     Route: 042
     Dates: start: 20081007
  8. CYCLOPHOSPHAMIDE [Concomitant]
     Indication: BREAST CANCER
     Dosage: UNK
     Dates: end: 20091118
  9. PACLITAXEL [Concomitant]
     Indication: BREAST CANCER
     Dosage: UNK
     Dates: end: 20090217

REACTIONS (1)
  - Ejection fraction decreased [Recovered/Resolved]
